FAERS Safety Report 7315033-5 (Version None)
Quarter: 2011Q1

REPORT INFORMATION
  Report Type: 
  Country: None (occurrence: None)
  Receive Date: 20110225
  Receipt Date: 20100315
  Transmission Date: 20110831
  Serious: No
  Sender: FDA-Public Use
  Company Number: US-MYLANLABS-2010S1004389

PATIENT
  Age: 18 Year
  Sex: Female

DRUGS (2)
  1. YAZ /01502501/ [Concomitant]
     Indication: CONTRACEPTION
     Route: 048
  2. AMNESTEEM [Suspect]
     Indication: ACNE CYSTIC
     Route: 048

REACTIONS (1)
  - MENSTRUAL DISORDER [None]
